FAERS Safety Report 19488921 (Version 1)
Quarter: 2021Q3

REPORT INFORMATION
  Report Type: Spontaneous
  Country: US (occurrence: US)
  Receive Date: 20210702
  Receipt Date: 20210702
  Transmission Date: 20211014
  Serious: Yes (Other)
  Sender: FDA-Public Use
  Company Number: US-HYGENIC CORPORATION-2113448

PATIENT
  Sex: Male

DRUGS (2)
  1. ICE PACK [Concomitant]
  2. BIOFREEZE ROLL?ON [Suspect]
     Active Substance: MENTHOL
     Indication: PAIN
     Route: 061

REACTIONS (1)
  - Chemical burn [Unknown]

NARRATIVE: CASE EVENT DATE: 20210526
